FAERS Safety Report 25339923 (Version 1)
Quarter: 2025Q2

REPORT INFORMATION
  Report Type: Spontaneous
  Country: US (occurrence: US)
  Receive Date: 20250521
  Receipt Date: 20250521
  Transmission Date: 20250716
  Serious: No
  Sender: BOEHRINGER INGELHEIM
  Company Number: US-Komodo Health-a23aa000007cMTJAA2

PATIENT
  Age: 75 Year
  Sex: Female

DRUGS (1)
  1. STIOLTO RESPIMAT [Suspect]
     Active Substance: OLODATEROL HYDROCHLORIDE\TIOTROPIUM BROMIDE MONOHYDRATE
     Indication: Chronic obstructive pulmonary disease

REACTIONS (12)
  - Blood glucose decreased [Unknown]
  - Dizziness [Unknown]
  - Nervousness [Recovered/Resolved]
  - Vision blurred [Recovered/Resolved]
  - Nasal congestion [Unknown]
  - Rhinorrhoea [Unknown]
  - Cough [Unknown]
  - Nausea [Unknown]
  - Dysphagia [Recovered/Resolved]
  - Headache [Recovered/Resolved]
  - Upper-airway cough syndrome [Not Recovered/Not Resolved]
  - Discomfort [Unknown]

NARRATIVE: CASE EVENT DATE: 20250516
